FAERS Safety Report 15842352 (Version 1)
Quarter: 2019Q1

REPORT INFORMATION
  Report Type: Spontaneous
  Country: US (occurrence: US)
  Receive Date: 20190118
  Receipt Date: 20190118
  Transmission Date: 20190417
  Serious: No
  Sender: FDA-Public Use
  Company Number: US-SA-2019SA012198

PATIENT
  Sex: Female

DRUGS (1)
  1. AUBAGIO [Suspect]
     Active Substance: TERIFLUNOMIDE
     Dosage: UNK UNK, QD
     Route: 048
     Dates: start: 201812

REACTIONS (6)
  - Limb discomfort [Unknown]
  - Micturition urgency [Unknown]
  - Fall [Unknown]
  - Knee deformity [Unknown]
  - Urine odour abnormal [Unknown]
  - Wheezing [Unknown]
